FAERS Safety Report 6968714-7 (Version None)
Quarter: 2010Q3

REPORT INFORMATION
  Report Type: 
  Country: None (occurrence: None)
  Receive Date: 20100907
  Receipt Date: 20100830
  Transmission Date: 20110219
  Serious: Yes (Hospitalization)
  Sender: FDA-Public Use
  Company Number: JP-MERCK-1008USA02547

PATIENT
  Age: 72 Year
  Sex: Male

DRUGS (8)
  1. PEPCID RPD [Suspect]
     Route: 048
     Dates: end: 20100813
  2. ALFAROL [Concomitant]
     Route: 065
  3. CALCIUM CARBONATE [Concomitant]
     Route: 048
  4. AMLODIPINE [Concomitant]
     Route: 048
  5. MUCODYNE [Concomitant]
     Route: 048
  6. LOPEMIN [Concomitant]
     Route: 048
  7. TANNALBIN [Concomitant]
     Route: 065
  8. LAC-B [Concomitant]
     Route: 065

REACTIONS (1)
  - LACK OF SPONTANEOUS SPEECH [None]
